FAERS Safety Report 8740573 (Version 3)
Quarter: 2012Q4

REPORT INFORMATION
  Report Type: 
  Country: US (occurrence: US)
  Receive Date: 20120823
  Receipt Date: 20121024
  Transmission Date: 20130627
  Serious: Yes (Hospitalization, Disabling, Other)
  Sender: FDA-Public Use
  Company Number: US-009507513-2011SP046042

PATIENT

DRUGS (3)
  1. NUVARING [Suspect]
     Indication: MENSTRUAL DISORDER
     Dosage: UNK
     Dates: start: 200906, end: 200909
  2. ALBUTEROL [Concomitant]
     Indication: PRODUCT USED FOR UNKNOWN INDICATION
     Dosage: UNK
     Dates: start: 2005
  3. FLUTICASONE PROPIONATE (+) SALMETEROL XINAFOATE [Concomitant]
     Indication: PRODUCT USED FOR UNKNOWN INDICATION
     Dosage: UNK
     Dates: start: 2005

REACTIONS (14)
  - Pulmonary hypertension [Unknown]
  - Pulmonary embolism [Unknown]
  - Deep vein thrombosis [Unknown]
  - Left ventricular dysfunction [Unknown]
  - Diabetes mellitus [Unknown]
  - Hypertension [Unknown]
  - Respiratory distress [Unknown]
  - Respiratory distress [Unknown]
  - Respiratory distress [Unknown]
  - Sleep apnoea syndrome [Unknown]
  - Sinus bradycardia [Unknown]
  - Chest pain [Unknown]
  - Nodule [Unknown]
  - Chest pain [Not Recovered/Not Resolved]
